FAERS Safety Report 4381717-4 (Version None)
Quarter: 2004Q2

REPORT INFORMATION
  Report Type: 
  Country: None (occurrence: None)
  Receive Date: 20040614
  Receipt Date: 20031015
  Transmission Date: 20050107
  Serious: No
  Sender: FDA-Public Use
  Company Number: 2003181738US

PATIENT
  Age: 72 Year
  Sex: Female

DRUGS (1)
  1. ZYVOX [Suspect]
     Indication: OSTEOMYELITIS
     Dates: start: 20030822, end: 20030901

REACTIONS (1)
  - ANAEMIA [None]
